FAERS Safety Report 11785593 (Version 1)
Quarter: 2015Q4

REPORT INFORMATION
  Report Type: Spontaneous
  Country: CZ (occurrence: CZ)
  Receive Date: 20151130
  Receipt Date: 20151130
  Transmission Date: 20160305
  Serious: Yes (Other)
  Sender: FDA-Public Use
  Company Number: CZ-TEVA-611909ISR

PATIENT
  Sex: Male

DRUGS (4)
  1. CARBOPLATIN. [Suspect]
     Active Substance: CARBOPLATIN
     Indication: LUNG ADENOCARCINOMA
     Dosage: 6 CYCLES
     Dates: start: 20140903, end: 20150121
  2. TRANSTEC [Concomitant]
     Active Substance: BUPRENORPHINE
     Indication: PAIN
     Dosage: 1 DOSAGE FORMS DAILY;
     Route: 062
  3. NAVELBIN [Concomitant]
     Indication: LUNG ADENOCARCINOMA
     Dosage: 6 CYCLES
     Dates: start: 20140903, end: 20150121
  4. OXYCODONE [Concomitant]
     Active Substance: OXYCODONE
     Indication: PAIN
     Dosage: 160 MILLIGRAM DAILY;
     Route: 048

REACTIONS (1)
  - Adenocarcinoma [Not Recovered/Not Resolved]
